FAERS Safety Report 8803019 (Version 1)
Quarter: 2012Q4

REPORT INFORMATION
  Report Type: 
  Country: KR (occurrence: KR)
  Receive Date: 20120924
  Receipt Date: 20120924
  Transmission Date: 20130627
  Serious: No
  Sender: FDA-Public Use
  Company Number: KR-JNJFOC-20120905831

PATIENT
  Sex: Male

DRUGS (3)
  1. DUROGESIC [Suspect]
     Indication: PAIN MANAGEMENT
     Route: 062
  2. DUROGESIC [Suspect]
     Indication: PAIN MANAGEMENT
     Route: 062
     Dates: start: 201206
  3. AN UNKNOWN MEDICATION [Suspect]
     Indication: PRODUCT USED FOR UNKNOWN INDICATION
     Route: 065

REACTIONS (5)
  - Treatment noncompliance [Unknown]
  - Vomiting [Not Recovered/Not Resolved]
  - Dysuria [Not Recovered/Not Resolved]
  - Inappropriate schedule of drug administration [Unknown]
  - Nausea [Not Recovered/Not Resolved]
